FAERS Safety Report 16654574 (Version 1)
Quarter: 2019Q3

REPORT INFORMATION
  Report Type: Spontaneous
  Country: US (occurrence: US)
  Receive Date: 20190801
  Receipt Date: 20190801
  Transmission Date: 20191004
  Serious: Yes (Hospitalization, Other)
  Sender: FDA-Public Use
  Company Number: US-HETERO-HET2019US01008

PATIENT
  Age: 3 Year
  Sex: Male

DRUGS (1)
  1. ARIPIPRAZOLE. [Suspect]
     Active Substance: ARIPIPRAZOLE
     Indication: PRODUCT USED FOR UNKNOWN INDICATION
     Dosage: 10 DOSAGE FORM
     Route: 065

REACTIONS (10)
  - Muscle contractions involuntary [Unknown]
  - Ataxia [Recovered/Resolved]
  - Somnolence [Unknown]
  - Jaw disorder [Unknown]
  - Accidental overdose [Unknown]
  - Lethargy [Unknown]
  - Muscle twitching [Unknown]
  - Blood pressure systolic decreased [Unknown]
  - Bradycardia [Unknown]
  - Hypokalaemia [Unknown]
